FAERS Safety Report 17025523 (Version 1)
Quarter: 2019Q4

REPORT INFORMATION
  Report Type: Spontaneous
  Country: JP (occurrence: JP)
  Receive Date: 20191113
  Receipt Date: 20191113
  Transmission Date: 20200122
  Serious: Yes (Other)
  Sender: FDA-Public Use
  Company Number: JP-MYLANLABS-2019M1108453

PATIENT
  Age: 59 Year
  Sex: Female

DRUGS (1)
  1. PREDNISOLONE. [Suspect]
     Active Substance: PREDNISOLONE
     Indication: ENCAPSULATING PERITONEAL SCLEROSIS
     Dosage: UNK
     Route: 065
     Dates: start: 201202

REACTIONS (1)
  - Drug ineffective [Unknown]
